FAERS Safety Report 12249357 (Version 1)
Quarter: 2016Q2

REPORT INFORMATION
  Report Type: Spontaneous
  Country: FR (occurrence: FR)
  Receive Date: 20160408
  Receipt Date: 20160408
  Transmission Date: 20160815
  Serious: Yes (Hospitalization, Other)
  Sender: FDA-Public Use
  Company Number: FR-BRISTOL-MYERS SQUIBB COMPANY-BMS-2016-024559

PATIENT
  Age: 77 Year
  Sex: Male

DRUGS (10)
  1. TARDYFERON [Concomitant]
     Active Substance: FERROUS SULFATE\FOLIC ACID
     Indication: PRODUCT USED FOR UNKNOWN INDICATION
     Dosage: UNK, BID
     Route: 065
  2. XATRAL [Concomitant]
     Active Substance: ALFUZOSIN
     Indication: PRODUCT USED FOR UNKNOWN INDICATION
     Dosage: 10 MG, QD
     Route: 065
  3. ROCEPHINE [Concomitant]
     Active Substance: CEFTRIAXONE SODIUM
     Indication: PSEUDOMONAS TEST POSITIVE
  4. OFLOCET                            /00731801/ [Concomitant]
     Active Substance: OFLOXACIN
     Indication: PSEUDOMONAS TEST POSITIVE
  5. CALCIPARINE [Suspect]
     Active Substance: HEPARIN CALCIUM
     Indication: PRODUCT USED FOR UNKNOWN INDICATION
     Dosage: 0.4 ML, BID
     Route: 058
  6. BISOPROLOL [Concomitant]
     Active Substance: BISOPROLOL
     Indication: PRODUCT USED FOR UNKNOWN INDICATION
     Dosage: 2.5 MG, QD
     Route: 065
  7. CIFLOX                             /00697201/ [Concomitant]
     Active Substance: CIPROFLOXACIN
     Indication: PRODUCT USED FOR UNKNOWN INDICATION
     Dosage: 200 MG, BID
     Route: 065
     Dates: end: 20160209
  8. OFLOCET                            /00731801/ [Concomitant]
     Active Substance: OFLOXACIN
     Indication: INFLAMMATION
     Dosage: 200 MG, BID
     Route: 065
     Dates: start: 20160126
  9. COUMADINE [Suspect]
     Active Substance: WARFARIN SODIUM
     Indication: PRODUCT USED FOR UNKNOWN INDICATION
     Dosage: 8 MG, QD
     Route: 048
  10. ROCEPHINE [Concomitant]
     Active Substance: CEFTRIAXONE SODIUM
     Indication: INFLAMMATION
     Dosage: UNK
     Route: 065
     Dates: start: 20160126

REACTIONS (4)
  - Inflammation [Recovering/Resolving]
  - Gastrointestinal ulcer haemorrhage [Unknown]
  - Rectal haemorrhage [Recovered/Resolved]
  - Prostatitis [Recovering/Resolving]

NARRATIVE: CASE EVENT DATE: 20160123
